FAERS Safety Report 12667973 (Version 2)
Quarter: 2017Q1

REPORT INFORMATION
  Report Type: Spontaneous
  Country: US (occurrence: US)
  Receive Date: 20160819
  Receipt Date: 20170102
  Transmission Date: 20170428
  Serious: No
  Sender: FDA-Public Use
  Company Number: US-TEVA-680717ACC

PATIENT
  Age: 32 Year
  Sex: Female
  Weight: 60.38 kg

DRUGS (5)
  1. PREDNISONE. [Concomitant]
     Active Substance: PREDNISONE
  2. PARAGARD T 380A [Suspect]
     Active Substance: COPPER
     Indication: CONTRACEPTION
     Dates: start: 20151211, end: 20160628
  3. IBUPROFEN. [Concomitant]
     Active Substance: IBUPROFEN
  4. ALLEGRA [Concomitant]
     Active Substance: FEXOFENADINE HYDROCHLORIDE
  5. ZOLOFT [Concomitant]
     Active Substance: SERTRALINE HYDROCHLORIDE

REACTIONS (6)
  - Disturbance in attention [Unknown]
  - Apathy [Unknown]
  - Vaginal discharge [Unknown]
  - Dyspareunia [Recovered/Resolved]
  - Insomnia [Unknown]
  - Device expulsion [Unknown]

NARRATIVE: CASE EVENT DATE: 20160115
